FAERS Safety Report 9280106 (Version 1)
Quarter: 2013Q2

REPORT INFORMATION
  Report Type: Spontaneous
  Country: CN (occurrence: CN)
  Receive Date: 20130509
  Receipt Date: 20130509
  Transmission Date: 20140414
  Serious: Yes (Other)
  Sender: FDA-Public Use
  Company Number: CN-JNJFOC-20130501160

PATIENT
  Sex: Female

DRUGS (5)
  1. TOPIRAMATE [Suspect]
     Indication: MYOCLONIC EPILEPSY AND RAGGED-RED FIBRES
     Route: 048
  2. TOPIRAMATE [Suspect]
     Indication: MYOCLONIC EPILEPSY AND RAGGED-RED FIBRES
     Route: 048
  3. TOPIRAMATE [Suspect]
     Indication: MYOCLONIC EPILEPSY AND RAGGED-RED FIBRES
     Route: 048
  4. TOPIRAMATE [Suspect]
     Indication: MYOCLONIC EPILEPSY AND RAGGED-RED FIBRES
     Route: 048
  5. LEVETIRACETAM [Suspect]
     Indication: MYOCLONIC EPILEPSY AND RAGGED-RED FIBRES
     Route: 065

REACTIONS (1)
  - Myoclonus [Not Recovered/Not Resolved]
